FAERS Safety Report 19751163 (Version 1)
Quarter: 2021Q3

REPORT INFORMATION
  Report Type: Spontaneous
  Country: US (occurrence: US)
  Receive Date: 20210826
  Receipt Date: 20210826
  Transmission Date: 20211014
  Serious: Yes (Hospitalization)
  Sender: FDA-Public Use
  Company Number: US-ROCHE-2896879

PATIENT
  Age: 61 Year
  Sex: Male

DRUGS (28)
  1. FLUOXETINE [Concomitant]
     Active Substance: FLUOXETINE HYDROCHLORIDE
  2. HYDROXYZINE HCL [Concomitant]
     Active Substance: HYDROXYZINE HYDROCHLORIDE
  3. ISOSORBIDE DINITRATE. [Concomitant]
     Active Substance: ISOSORBIDE DINITRATE
  4. TAMSULOSIN [Concomitant]
     Active Substance: TAMSULOSIN
  5. ROSUVASTATIN. [Concomitant]
     Active Substance: ROSUVASTATIN
  6. WIXELA INHUB [Concomitant]
     Active Substance: FLUTICASONE PROPIONATE\SALMETEROL XINAFOATE
  7. PREDNISONE. [Concomitant]
     Active Substance: PREDNISONE
  8. XOLAIR [Suspect]
     Active Substance: OMALIZUMAB
     Indication: ASTHMA
     Dosage: 150MG/ML
     Route: 058
     Dates: start: 20190914
  9. XOLAIR [Suspect]
     Active Substance: OMALIZUMAB
  10. ALENDRONATE [Concomitant]
     Active Substance: ALENDRONATE SODIUM
  11. GABAPENTIN. [Concomitant]
     Active Substance: GABAPENTIN
  12. MECLIZINE [Concomitant]
     Active Substance: MECLIZINE HYDROCHLORIDE
  13. MONTELUKASTUM [Concomitant]
  14. TRAZODONE [Concomitant]
     Active Substance: TRAZODONE HYDROCHLORIDE
  15. DULOXETINE. [Concomitant]
     Active Substance: DULOXETINE
  16. METOPROLOL TARTRATE. [Concomitant]
     Active Substance: METOPROLOL TARTRATE
  17. OMEPRAZOLE. [Concomitant]
     Active Substance: OMEPRAZOLE
  18. ASPIRIN. [Concomitant]
     Active Substance: ASPIRIN
  19. FLUTICASONE PROPIONATE. [Concomitant]
     Active Substance: FLUTICASONE PROPIONATE
  20. LAMOTRIGINE. [Concomitant]
     Active Substance: LAMOTRIGINE
  21. PROAIR HFA [Concomitant]
     Active Substance: ALBUTEROL SULFATE
  22. XOLAIR [Suspect]
     Active Substance: OMALIZUMAB
  23. ACAMPROL [Concomitant]
  24. ALBUTEROL. [Concomitant]
     Active Substance: ALBUTEROL
  25. ARIPIPRAZOLE. [Concomitant]
     Active Substance: ARIPIPRAZOLE
  26. ATORVASTATIN [Concomitant]
     Active Substance: ATORVASTATIN
  27. CARVEDILOL. [Concomitant]
     Active Substance: CARVEDILOL
  28. NALTREXONE [Concomitant]
     Active Substance: NALTREXONE

REACTIONS (2)
  - Cerebrovascular accident [Unknown]
  - Asthma [Unknown]

NARRATIVE: CASE EVENT DATE: 20210812
